FAERS Safety Report 9022821 (Version 1)
Quarter: 2013Q1

REPORT INFORMATION
  Report Type: Spontaneous
  Country: US (occurrence: US)
  Receive Date: 20130120
  Receipt Date: 20130120
  Transmission Date: 20140127
  Serious: No
  Sender: FDA-Public Use
  Company Number: US-ALLERGAN-1217204US

PATIENT
  Age: 46 Year
  Sex: Female

DRUGS (1)
  1. BOTOX COSMETIC [Suspect]
     Indication: SKIN WRINKLING
     Dosage: UNK UNK, SINGLE
     Route: 030
     Dates: start: 20120921, end: 20120921

REACTIONS (9)
  - Swelling face [Recovered/Resolved]
  - Somnolence [Unknown]
  - Musculoskeletal stiffness [Unknown]
  - Joint stiffness [Unknown]
  - Rhinorrhoea [Recovered/Resolved]
  - Influenza like illness [Recovered/Resolved]
  - Oropharyngeal pain [Recovered/Resolved]
  - Headache [Recovered/Resolved]
  - Dry eye [Recovering/Resolving]
